FAERS Safety Report 4451607-7 (Version None)
Quarter: 2004Q3

REPORT INFORMATION
  Report Type: 
  Country: None (occurrence: None)
  Receive Date: 20040915
  Receipt Date: 20040902
  Transmission Date: 20050211
  Serious: No
  Sender: FDA-Public Use
  Company Number: 04H-163-0272332-00

PATIENT
  Age: 65 Year
  Sex: Male

DRUGS (2)
  1. DOBUTAMINE HCL [Suspect]
     Indication: HYPOTENSION
     Route: 042
  2. DOPAMINE HCL [Suspect]
     Indication: HYPOTENSION

REACTIONS (1)
  - EXTRAVASATION [None]
